FAERS Safety Report 9103348 (Version 2)
Quarter: 2013Q1

REPORT INFORMATION
  Report Type: Spontaneous
  Country: US (occurrence: US)
  Receive Date: 20130219
  Receipt Date: 20130219
  Transmission Date: 20140127
  Serious: Yes (Other)
  Sender: FDA-Public Use
  Company Number: US-PFIZER INC-2013015366

PATIENT
  Age: 80 Year
  Sex: Female

DRUGS (7)
  1. CELEBREX [Suspect]
     Dosage: UNK
  2. SENOKOT [Suspect]
     Dosage: UNK
  3. VITAMIN D [Suspect]
     Dosage: UNK
  4. PREDNISONE [Suspect]
     Dosage: UNK
  5. POLYETHYLENE GLYCOL [Suspect]
     Dosage: UNK
  6. COD-LIVER OIL [Suspect]
     Dosage: UNK
  7. VITAMIN A [Suspect]
     Dosage: UNK

REACTIONS (3)
  - Blindness [Unknown]
  - Ill-defined disorder [Unknown]
  - Accident [Unknown]
